FAERS Safety Report 14347310 (Version 1)
Quarter: 2018Q1

REPORT INFORMATION
  Report Type: Spontaneous
  Country: US (occurrence: US)
  Receive Date: 20180103
  Receipt Date: 20180103
  Transmission Date: 20180509
  Serious: No
  Sender: FDA-Public Use
  Company Number: None

PATIENT
  Age: 81 Year
  Sex: Female
  Weight: 49.9 kg

DRUGS (5)
  1. SIMBRINZA [Suspect]
     Active Substance: BRIMONIDINE TARTRATE\BRINZOLAMIDE
     Indication: GLAUCOMA
     Route: 031
     Dates: start: 20141027, end: 20141215
  2. EYE CAPS [Concomitant]
  3. CITRACAL [Concomitant]
     Active Substance: CALCIUM CITRATE
  4. DORZOLOMIDE [Concomitant]
     Active Substance: DORZOLAMIDE
  5. LATANOPROST. [Concomitant]
     Active Substance: LATANOPROST

REACTIONS (3)
  - Confusional state [None]
  - Nausea [None]
  - Dizziness [None]
